FAERS Safety Report 8598026-X (Version None)
Quarter: 2012Q3

REPORT INFORMATION
  Report Type: 
  Country: None (occurrence: None)
  Receive Date: 20120816
  Receipt Date: 20120813
  Transmission Date: 20120928
  Serious: Yes (Other)
  Sender: FDA-Public Use
  Company Number: DE-BAYER-2012-081704

PATIENT
  Sex: Female

DRUGS (2)
  1. BETAFERON [Suspect]
     Dosage: UNK
     Dates: start: 20020101, end: 20111201
  2. COPAXONE [Concomitant]

REACTIONS (2)
  - MYOCARDITIS INFECTIOUS [None]
  - PLEURAL EFFUSION [None]
